FAERS Safety Report 4326799-0 (Version None)
Quarter: 2004Q1

REPORT INFORMATION
  Report Type: 
  Country: None (occurrence: None)
  Receive Date: 20040330
  Receipt Date: 20040310
  Transmission Date: 20041129
  Serious: Yes (Other)
  Sender: FDA-Public Use
  Company Number: PHBS2004NL03435

PATIENT
  Age: 86 Year
  Sex: Male

DRUGS (3)
  1. DICLOFENAC SODIUM [Suspect]
     Indication: BACK PAIN
     Dosage: 100 MG/DAY
     Dates: start: 20031119, end: 20040215
  2. DICLOFENAC SODIUM [Suspect]
     Dates: start: 20010601, end: 20040101
  3. NITRAZEPAM [Concomitant]

REACTIONS (5)
  - ABDOMINAL PAIN [None]
  - CROHN'S DISEASE [None]
  - DIARRHOEA HAEMORRHAGIC [None]
  - FATIGUE [None]
  - WEIGHT DECREASED [None]
